FAERS Safety Report 15629825 (Version 1)
Quarter: 2018Q4

REPORT INFORMATION
  Report Type: Spontaneous
  Country: DE (occurrence: DE)
  Receive Date: 20181117
  Receipt Date: 20181117
  Transmission Date: 20190205
  Serious: Yes (Other)
  Sender: FDA-Public Use
  Company Number: DE-BIOGEN-2018BI00658623

PATIENT
  Age: 38 Year
  Sex: Female
  Weight: 108 kg

DRUGS (1)
  1. PLEGRIDY [Suspect]
     Active Substance: PEGINTERFERON BETA-1A
     Indication: MULTIPLE SCLEROSIS
     Dosage: ALLE 14 TAGE
     Route: 058
     Dates: start: 201801, end: 201810

REACTIONS (1)
  - Diabetes mellitus [Not Recovered/Not Resolved]
